FAERS Safety Report 8155181-3 (Version None)
Quarter: 2012Q1

REPORT INFORMATION
  Report Type: 
  Country: None (occurrence: None)
  Receive Date: 20120221
  Receipt Date: 20120216
  Transmission Date: 20120608
  Serious: Yes (Life-Threatening, Hospitalization)
  Sender: FDA-Public Use
  Company Number: US-ASTRAZENECA-2010SE29601

PATIENT
  Age: 52 Year
  Sex: Male
  Weight: 68 kg

DRUGS (4)
  1. LYRICA [Concomitant]
  2. SEROQUEL [Suspect]
     Indication: BIPOLAR DISORDER
     Route: 048
     Dates: start: 20080101, end: 20100601
  3. TYLENOL PM [Suspect]
     Route: 048
  4. CLONIPINE [Concomitant]

REACTIONS (6)
  - COMA [None]
  - FEELING ABNORMAL [None]
  - OVERDOSE [None]
  - SELF-MEDICATION [None]
  - INSOMNIA [None]
  - DRUG DOSE OMISSION [None]
